FAERS Safety Report 18637740 (Version 9)
Quarter: 2021Q4

REPORT INFORMATION
  Report Type: Report from Study
  Country: US (occurrence: US)
  Receive Date: 20201218
  Receipt Date: 20211211
  Transmission Date: 20220304
  Serious: Yes (Other)
  Sender: FDA-Public Use
  Company Number: US-NOVARTISPH-NVSC2020US336900

PATIENT
  Age: 47 Year
  Sex: Male

DRUGS (1)
  1. ENTRESTO [Suspect]
     Active Substance: SACUBITRIL\VALSARTAN
     Indication: Product used for unknown indication
     Dosage: 1 DOSAGE FORM, (24/26 MG), BID
     Route: 048
     Dates: start: 20201213, end: 20210823

REACTIONS (8)
  - Lower respiratory tract infection [Recovering/Resolving]
  - Weight fluctuation [Unknown]
  - Hypersomnia [Recovering/Resolving]
  - Headache [Unknown]
  - Cough [Recovering/Resolving]
  - Fatigue [Unknown]
  - Product dose omission issue [Recovered/Resolved]
  - Product dose omission issue [Unknown]

NARRATIVE: CASE EVENT DATE: 20210327
